FAERS Safety Report 6661147-2 (Version None)
Quarter: 2010Q1

REPORT INFORMATION
  Report Type: 
  Country: None (occurrence: None)
  Receive Date: 20100331
  Receipt Date: 20100326
  Transmission Date: 20100710
  Serious: Yes (Life-Threatening)
  Sender: FDA-Public Use
  Company Number: A0843889A

PATIENT
  Age: 71 Year
  Sex: Female

DRUGS (3)
  1. ADVAIR DISKUS 100/50 [Suspect]
     Indication: DRUG USE FOR UNKNOWN INDICATION
     Route: 055
  2. THEOPHYLLINE [Concomitant]
  3. IMIPRAMINE [Concomitant]

REACTIONS (2)
  - INHALATION THERAPY [None]
  - PRODUCT QUALITY ISSUE [None]
